FAERS Safety Report 21916663 (Version 3)
Quarter: 2023Q1

REPORT INFORMATION
  Report Type: Spontaneous
  Country: US (occurrence: US)
  Receive Date: 20230126
  Receipt Date: 20230323
  Transmission Date: 20230418
  Serious: No
  Sender: FDA-Public Use
  Company Number: US-Calliditas-2023CAL00057

PATIENT
  Age: 69 Year
  Sex: Female

DRUGS (8)
  1. TARPEYO [Suspect]
     Active Substance: BUDESONIDE
     Indication: IgA nephropathy
     Dosage: 16 MG (4 MG CAPSULES) ONCE DAILY
     Route: 048
     Dates: start: 20220914, end: 20230122
  2. JANUVIA [Concomitant]
     Active Substance: SITAGLIPTIN PHOSPHATE
  3. ALLOPURINOL [Concomitant]
     Active Substance: ALLOPURINOL
  4. CARVEDILOL [Concomitant]
     Active Substance: CARVEDILOL
  5. EZETIMIBE [Concomitant]
     Active Substance: EZETIMIBE
  6. FISH OIL [Concomitant]
     Active Substance: FISH OIL
  7. CHOLECALCIFEROL [Concomitant]
     Active Substance: CHOLECALCIFEROL
  8. PEPCID [Concomitant]
     Active Substance: FAMOTIDINE

REACTIONS (5)
  - Feeling abnormal [Recovered/Resolved]
  - Insomnia [Recovered/Resolved]
  - Panic attack [Recovered/Resolved]
  - Asthenia [Recovered/Resolved]
  - Tremor [Recovered/Resolved]

NARRATIVE: CASE EVENT DATE: 20221101
